FAERS Safety Report 6368594-7 (Version None)
Quarter: 2009Q3

REPORT INFORMATION
  Report Type: 
  Country: None (occurrence: None)
  Receive Date: 20090917
  Receipt Date: 20090917
  Transmission Date: 20100115
  Serious: Yes (Other)
  Sender: FDA-Public Use
  Company Number: None

PATIENT
  Sex: Female

DRUGS (1)
  1. RHOPHYLAC [Suspect]
     Indication: PROPHYLAXIS
     Dosage: 300 UG SINGLE DOSE IM
     Route: 030
     Dates: start: 20090710, end: 20090710

REACTIONS (1)
  - DRUG EXPOSURE DURING PREGNANCY [None]
